FAERS Safety Report 8983271 (Version 2)
Quarter: 2013Q1

REPORT INFORMATION
  Report Type: Spontaneous
  Country: CA (occurrence: CA)
  Receive Date: 20121224
  Receipt Date: 20130219
  Transmission Date: 20140127
  Serious: Yes (Hospitalization, Other)
  Sender: FDA-Public Use
  Company Number: PHHY2012CA118796

PATIENT
  Sex: Female

DRUGS (7)
  1. ACLASTA [Suspect]
     Indication: OSTEOPOROSIS
     Dosage: 5 MG YEARLY
     Route: 042
     Dates: start: 20120214
  2. PREDNISON [Concomitant]
     Dosage: 10 MG, UNK
  3. CLONAZEPAM [Concomitant]
     Dosage: 0.1 UNK, QOD
  4. LIPITOR [Concomitant]
     Dosage: 10 MG, QOD
  5. SYNTHROID [Concomitant]
     Dosage: 0.05 MG, QOD
  6. FOLIC ACID [Concomitant]
     Dosage: UNK UKN, UNK
  7. VITAMIN D [Concomitant]
     Dosage: 2000 IU, QOD

REACTIONS (3)
  - Crohn^s disease [Unknown]
  - Infection [Unknown]
  - Post procedural complication [Unknown]
